FAERS Safety Report 25441249 (Version 1)
Quarter: 2025Q2

REPORT INFORMATION
  Report Type: Report from Study
  Country: US (occurrence: US)
  Receive Date: 20250616
  Receipt Date: 20250616
  Transmission Date: 20250717
  Serious: Yes (Hospitalization)
  Sender: TAKEDA
  Company Number: US-TAKEDA-2024TUS127213

PATIENT
  Sex: Female

DRUGS (1)
  1. VEDOLIZUMAB [Suspect]
     Active Substance: VEDOLIZUMAB
     Indication: Product used for unknown indication

REACTIONS (5)
  - Hernia [Unknown]
  - Tooth fracture [Unknown]
  - Tooth infection [Unknown]
  - Inappropriate schedule of product administration [Unknown]
  - Ear pain [Unknown]
